FAERS Safety Report 7792669-9 (Version None)
Quarter: 2011Q3

REPORT INFORMATION
  Report Type: 
  Country: None (occurrence: None)
  Receive Date: 20110929
  Receipt Date: 20110915
  Transmission Date: 20111222
  Serious: Yes (Other)
  Sender: FDA-Public Use
  Company Number: AUR-APL-2011-05194

PATIENT
  Age: 20 Year
  Sex: Male

DRUGS (2)
  1. FLUOXETINE [Suspect]
     Indication: MYASTHENIC SYNDROME
     Dosage: (60 MG, 1 D)
  2. QUINIDINE (QUINIDINE) [Concomitant]

REACTIONS (2)
  - RESPIRATORY DISORDER [None]
  - CONDITION AGGRAVATED [None]
